FAERS Safety Report 7795728-X (Version None)
Quarter: 2011Q4

REPORT INFORMATION
  Report Type: 
  Country: None (occurrence: None)
  Receive Date: 20111004
  Receipt Date: 20110927
  Transmission Date: 20120403
  Serious: Yes (Hospitalization)
  Sender: FDA-Public Use
  Company Number: US-ABBOTT-11P-163-0858665-00

PATIENT
  Sex: Female
  Weight: 108.96 kg

DRUGS (8)
  1. HUMIRA [Suspect]
     Indication: RHEUMATOID ARTHRITIS
     Dates: start: 20050101, end: 20110801
  2. MICARDIS HCT [Concomitant]
     Indication: HYPERTENSION
  3. SYNTHROID [Concomitant]
     Indication: HYPOTHYROIDISM
  4. ARAVA [Concomitant]
     Indication: RHEUMATOID ARTHRITIS
  5. ARAVA [Concomitant]
     Indication: PSORIATIC ARTHROPATHY
  6. PREVACID [Concomitant]
     Indication: GASTROOESOPHAGEAL REFLUX DISEASE
  7. HUMIRA [Suspect]
     Indication: PSORIATIC ARTHROPATHY
  8. METOPROLOL TARTRATE [Concomitant]
     Indication: HYPERTENSION

REACTIONS (11)
  - MONOPARESIS [None]
  - JOINT STIFFNESS [None]
  - MUSCLE INJURY [None]
  - JOINT SWELLING [None]
  - OEDEMA PERIPHERAL [None]
  - MOBILITY DECREASED [None]
  - BACK PAIN [None]
  - PAIN IN EXTREMITY [None]
  - ROTATOR CUFF SYNDROME [None]
  - ROAD TRAFFIC ACCIDENT [None]
  - MUSCULOSKELETAL PAIN [None]
